FAERS Safety Report 6405903-4 (Version None)
Quarter: 2009Q4

REPORT INFORMATION
  Report Type: 
  Country: None (occurrence: None)
  Receive Date: 20091016
  Receipt Date: 20091016
  Transmission Date: 20100525
  Serious: Yes (Life-Threatening, Hospitalization)
  Sender: FDA-Public Use
  Company Number: None

PATIENT
  Age: 58 Year
  Sex: Male
  Weight: 102.0593 kg

DRUGS (2)
  1. INDOMETHACIN [Suspect]
     Indication: GOUT
     Dosage: 50MG BID PO
     Route: 048
     Dates: start: 20080506, end: 20080508
  2. LEVAQUIN [Suspect]
     Indication: GASTROINTESTINAL INFECTION
     Dosage: 500MG QD PO
     Route: 048
     Dates: start: 20080504, end: 20080508

REACTIONS (3)
  - CONVULSION [None]
  - DRUG INTERACTION [None]
  - GOUT [None]
